FAERS Safety Report 4436474-X (Version None)
Quarter: 2004Q3

REPORT INFORMATION
  Report Type: 
  Country: None (occurrence: None)
  Receive Date: 20040830
  Receipt Date: 20040524
  Transmission Date: 20050211
  Serious: No
  Sender: FDA-Public Use
  Company Number: US-BRISTOL-MYERS SQUIBB COMPANY-12595690

PATIENT
  Age: 73 Year
  Sex: Female
  Weight: 136 kg

DRUGS (4)
  1. ABILIFY [Suspect]
     Indication: MAJOR DEPRESSION
     Route: 048
     Dates: end: 20040524
  2. ABILIFY [Suspect]
     Indication: DEMENTIA
     Route: 048
     Dates: end: 20040524
  3. ABILIFY [Suspect]
     Indication: PSYCHOTIC DISORDER
     Route: 048
     Dates: end: 20040524
  4. ARICEPT [Concomitant]

REACTIONS (1)
  - PARKINSONISM [None]
